FAERS Safety Report 9795032 (Version 1)
Quarter: 2014Q1

REPORT INFORMATION
  Report Type: Spontaneous
  Country: MY (occurrence: MY)
  Receive Date: 20140102
  Receipt Date: 20140102
  Transmission Date: 20141002
  Serious: Yes (Other)
  Sender: FDA-Public Use
  Company Number: MY-BAXTER-2014BAX000009

PATIENT
  Age: 56 Year
  Sex: Female

DRUGS (4)
  1. HOLOXAN INJ 1GM (30ML VIAL) [Suspect]
     Indication: NEOPLASM MALIGNANT
     Route: 042
  2. UROMITEXAN INJECTION 400MG (4ML AMP) [Suspect]
     Indication: NEOPLASM MALIGNANT
     Route: 042
  3. PROMETHAZINE [Concomitant]
     Indication: PRODUCT USED FOR UNKNOWN INDICATION
     Route: 065
  4. GRANISETRON [Concomitant]
     Indication: PRODUCT USED FOR UNKNOWN INDICATION
     Route: 065

REACTIONS (1)
  - Hot flush [Unknown]
